FAERS Safety Report 6310651-5 (Version None)
Quarter: 2009Q3

REPORT INFORMATION
  Report Type: 
  Country: None (occurrence: None)
  Receive Date: 20090814
  Receipt Date: 20090804
  Transmission Date: 20100115
  Serious: Yes (Hospitalization)
  Sender: FDA-Public Use
  Company Number: JP-ABBOTT-09P-087-0585106-00

PATIENT
  Sex: Male

DRUGS (12)
  1. LUPRON DEPOT [Suspect]
     Indication: SPINAL MUSCULAR ATROPHY
     Route: 058
  2. TAP-144-SR 3M (CODE NOT BROKEN)(LEUPRORELIN ACETATE) [Concomitant]
     Indication: SPINAL MUSCULAR ATROPHY
     Dosage: 11.25 MG OR PLACEBO
     Dates: start: 20080219
  3. TAKEPRON [Concomitant]
     Indication: REFLUX OESOPHAGITIS
     Route: 048
     Dates: start: 20081121
  4. DIOVAN [Concomitant]
     Indication: HYPERTENSION
     Route: 048
     Dates: start: 20070202
  5. JUVELA N [Concomitant]
     Indication: SPINAL OSTEOARTHRITIS
     Route: 048
     Dates: start: 20070823
  6. GOSYAZINKIGAN [Concomitant]
     Indication: SPINAL OSTEOARTHRITIS
     Route: 048
     Dates: start: 20070202
  7. MUCOSTA [Concomitant]
     Indication: GASTRITIS PROPHYLAXIS
     Route: 048
     Dates: start: 20080813
  8. ALLEGRA [Concomitant]
     Indication: ASTHMA
     Route: 048
     Dates: start: 20061119
  9. CLEANAL [Concomitant]
     Indication: ASTHMA
     Route: 048
     Dates: start: 20060311
  10. MOHRUS TAPE (KETOPROPEN) [Concomitant]
     Indication: SPINAL OSTEOARTHRITIS
     Dosage: OPTIMAL DOSE (AS REQUIRED)
     Route: 062
     Dates: start: 20060601
  11. FLUTIDE [Concomitant]
     Indication: ASTHMA
     Dosage: FORM: AIR DISKUS (OPTIMAL DOSE - AT ATTACK)
     Route: 055
     Dates: start: 20060601
  12. MEPTIN AIR [Concomitant]
     Indication: ASTHMA
     Dosage: OPTIMAL DOSE - AT ATTACK
     Route: 055
     Dates: start: 20060601

REACTIONS (1)
  - CALCULUS URETERIC [None]
